FAERS Safety Report 4677737-2 (Version None)
Quarter: 2005Q2

REPORT INFORMATION
  Report Type: 
  Country: None (occurrence: None)
  Receive Date: 20050526
  Receipt Date: 20050526
  Transmission Date: 20051028
  Serious: No
  Sender: FDA-Public Use
  Company Number: None

PATIENT
  Sex: Male

DRUGS (2)
  1. ACCUTANE [Suspect]
  2. LASIK [Suspect]

REACTIONS (2)
  - KERATOCONJUNCTIVITIS SICCA [None]
  - POST PROCEDURAL COMPLICATION [None]
